FAERS Safety Report 17763535 (Version 11)
Quarter: 2020Q3

REPORT INFORMATION
  Report Type: Spontaneous
  Country: US (occurrence: US)
  Receive Date: 20200509
  Receipt Date: 20200728
  Transmission Date: 20201102
  Serious: Yes (Other)
  Sender: FDA-Public Use
  Company Number: US-UNITED THERAPEUTICS-UNT-2020-007019

PATIENT
  Age: 71 Year
  Sex: Female
  Weight: 73.2 kg

DRUGS (7)
  1. OPSUMIT [Suspect]
     Active Substance: MACITENTAN
     Indication: PRODUCT USED FOR UNKNOWN INDICATION
     Dosage: UNK
     Route: 065
  2. REMODULIN [Suspect]
     Active Substance: TREPROSTINIL
     Dosage: 0.022 ?G/KG, CONTINUING
     Route: 058
  3. REMODULIN [Suspect]
     Active Substance: TREPROSTINIL
     Dosage: UNK, CONTINUING
     Route: 058
  4. REMODULIN [Suspect]
     Active Substance: TREPROSTINIL
     Indication: PULMONARY ARTERIAL HYPERTENSION
     Dosage: UNK, CONTINUING
     Route: 058
     Dates: start: 20190925
  5. UPTRAVI [Suspect]
     Active Substance: SELEXIPAG
     Indication: PRODUCT USED FOR UNKNOWN INDICATION
     Dosage: UNK
     Route: 065
  6. REMODULIN [Suspect]
     Active Substance: TREPROSTINIL
     Dosage: UNK, CONTINUING
     Route: 058
  7. CYCLOBENZAPRINE. [Suspect]
     Active Substance: CYCLOBENZAPRINE
     Indication: PRODUCT USED FOR UNKNOWN INDICATION
     Dosage: UNK
     Route: 065

REACTIONS (37)
  - Cough [Not Recovered/Not Resolved]
  - Hypoaesthesia [Unknown]
  - Sciatica [Unknown]
  - Weight decreased [Unknown]
  - Nausea [Recovering/Resolving]
  - Needle issue [Unknown]
  - Back pain [Not Recovered/Not Resolved]
  - Pain [Unknown]
  - Headache [Unknown]
  - Joint swelling [Unknown]
  - Rotator cuff syndrome [Unknown]
  - Food poisoning [Unknown]
  - Musculoskeletal pain [Unknown]
  - Memory impairment [Unknown]
  - Pollakiuria [Unknown]
  - Infusion site swelling [Unknown]
  - Nasopharyngitis [Unknown]
  - Incorrect dose administered [Unknown]
  - Infusion site pain [Unknown]
  - Musculoskeletal stiffness [Unknown]
  - Peripheral swelling [Unknown]
  - Pulmonary arterial pressure increased [Unknown]
  - Feeling abnormal [Unknown]
  - Product communication issue [Unknown]
  - Abdominal pain upper [Unknown]
  - Dizziness [Unknown]
  - HIV infection [Unknown]
  - Decreased appetite [Unknown]
  - Pain in extremity [Unknown]
  - Device dislocation [Unknown]
  - Diarrhoea [Not Recovered/Not Resolved]
  - Malaise [Unknown]
  - Hypersomnia [Unknown]
  - Infusion site discolouration [Unknown]
  - Condition aggravated [Unknown]
  - Dyspnoea exertional [Unknown]
  - Chest discomfort [Recovered/Resolved]

NARRATIVE: CASE EVENT DATE: 2020
